FAERS Safety Report 15504862 (Version 2)
Quarter: 2018Q4

REPORT INFORMATION
  Report Type: Spontaneous
  Country: US (occurrence: US)
  Receive Date: 20181016
  Receipt Date: 20181228
  Transmission Date: 20190205
  Serious: Yes (Other)
  Sender: FDA-Public Use
  Company Number: US-SA-2018SA283552

PATIENT
  Age: 56 Year
  Sex: Female
  Weight: 95.25 kg

DRUGS (27)
  1. EFUDEX [Concomitant]
     Active Substance: FLUOROURACIL
     Dosage: UNK
     Dates: start: 20140611, end: 20140611
  2. EFUDEX [Concomitant]
     Active Substance: FLUOROURACIL
     Dosage: UNK
     Dates: start: 20140625, end: 20140625
  3. ELLENCE [Concomitant]
     Active Substance: EPIRUBICIN HYDROCHLORIDE
     Dosage: UNK
     Dates: start: 20140528, end: 20140528
  4. ELLENCE [Concomitant]
     Active Substance: EPIRUBICIN HYDROCHLORIDE
     Dosage: UNK
     Dates: start: 20140719, end: 20140719
  5. EFUDEX [Concomitant]
     Active Substance: FLUOROURACIL
     Dosage: UNK
     Dates: start: 20140528, end: 20140528
  6. DECADRON [DEXAMETHASONE] [Concomitant]
  7. NEULASTA [Concomitant]
     Active Substance: PEGFILGRASTIM
  8. NYSTATIN. [Concomitant]
     Active Substance: NYSTATIN
  9. TAXOTERE [Suspect]
     Active Substance: DOCETAXEL
     Dosage: 150 MG, Q3W
     Route: 042
     Dates: start: 20141001, end: 20141001
  10. ZOFRAN [Concomitant]
     Active Substance: ONDANSETRON HYDROCHLORIDE
  11. CYTOXAN [Concomitant]
     Active Substance: CYCLOPHOSPHAMIDE
     Dosage: UNK
     Dates: start: 20140611, end: 20140611
  12. PARAPLATIN [Concomitant]
     Active Substance: CARBOPLATIN
     Dosage: UNK
     Dates: start: 20140723, end: 20140723
  13. PARAPLATIN [Concomitant]
     Active Substance: CARBOPLATIN
     Dosage: UNK
     Dates: start: 20141001, end: 20141001
  14. ELLENCE [Concomitant]
     Active Substance: EPIRUBICIN HYDROCHLORIDE
     Dosage: UNK
     Dates: start: 20140611, end: 20140611
  15. ELLENCE [Concomitant]
     Active Substance: EPIRUBICIN HYDROCHLORIDE
     Dosage: UNK
     Dates: start: 20140625, end: 20140625
  16. ALOXI [Concomitant]
     Active Substance: PALONOSETRON HYDROCHLORIDE
  17. LASIX [Concomitant]
     Active Substance: FUROSEMIDE
  18. CYTOXAN [Concomitant]
     Active Substance: CYCLOPHOSPHAMIDE
     Dosage: UNK
     Dates: start: 20140625, end: 20140625
  19. TAXOTERE [Suspect]
     Active Substance: DOCETAXEL
     Indication: BREAST CANCER FEMALE
     Dosage: 150 MG, Q3W
     Route: 042
     Dates: start: 20140723, end: 20140723
  20. PARAPLATIN [Concomitant]
     Active Substance: CARBOPLATIN
     Dosage: UNK
     Dates: start: 20140903, end: 20140903
  21. PRILOSEC [Concomitant]
     Active Substance: OMEPRAZOLE MAGNESIUM
  22. FEMARA [Concomitant]
     Active Substance: LETROZOLE
     Dosage: UNK
     Dates: start: 20140507
  23. EFUDEX [Concomitant]
     Active Substance: FLUOROURACIL
     Dosage: UNK
     Dates: start: 20140719, end: 20140719
  24. PARAPLATIN [Concomitant]
     Active Substance: CARBOPLATIN
     Dosage: UNK
     Dates: start: 20140813, end: 20140813
  25. NEOSAR [Concomitant]
     Active Substance: CYCLOPHOSPHAMIDE
  26. CYTOXAN [Concomitant]
     Active Substance: CYCLOPHOSPHAMIDE
     Dosage: UNK
     Dates: start: 20140528, end: 20140528
  27. CYTOXAN [Concomitant]
     Active Substance: CYCLOPHOSPHAMIDE
     Dosage: UNK
     Dates: start: 20140719, end: 20140719

REACTIONS (2)
  - Alopecia [Recovering/Resolving]
  - Psychological trauma [Unknown]

NARRATIVE: CASE EVENT DATE: 20150728
